FAERS Safety Report 16678110 (Version 1)
Quarter: 2019Q3

REPORT INFORMATION
  Report Type: Report from Study
  Country: DE (occurrence: DE)
  Receive Date: 20190807
  Receipt Date: 20190807
  Transmission Date: 20191004
  Serious: Yes (Hospitalization)
  Sender: FDA-Public Use
  Company Number: DE-ROCHE-2363912

PATIENT
  Age: 52 Year
  Sex: Female
  Weight: 76 kg

DRUGS (2)
  1. COBIMETINIB. [Suspect]
     Active Substance: COBIMETINIB
     Indication: METASTATIC MALIGNANT MELANOMA
     Dosage: ON 20/JUL/2019, THE PATIENT RECEIVED THE MOST RECENT DOSE OF COBIMETINIB
     Route: 048
     Dates: start: 20181115
  2. VEMURAFENIB. [Suspect]
     Active Substance: VEMURAFENIB
     Indication: METASTATIC MALIGNANT MELANOMA
     Dosage: ON 20/JUL/2019, THE PATIENT RECEIVED THE MOST RECENT DOSE OF VEMURAFENIB
     Route: 048
     Dates: start: 20181115

REACTIONS (4)
  - Subileus [Not Recovered/Not Resolved]
  - Diarrhoea [Not Recovered/Not Resolved]
  - Pyometra [Not Recovered/Not Resolved]
  - Vomiting [Not Recovered/Not Resolved]

NARRATIVE: CASE EVENT DATE: 20190720
